FAERS Safety Report 11158930 (Version 3)
Quarter: 2015Q2

REPORT INFORMATION
  Report Type: Spontaneous
  Country: JP (occurrence: JP)
  Receive Date: 20150603
  Receipt Date: 20150618
  Transmission Date: 20150821
  Serious: Yes (Hospitalization)
  Sender: FDA-Public Use
  Company Number: JP-BAYER-2015-262247

PATIENT
  Age: 72 Year
  Sex: Male

DRUGS (1)
  1. BAYASPIRIN [Suspect]
     Active Substance: ASPIRIN
     Indication: ARRHYTHMIA
     Dosage: UNK
     Route: 048

REACTIONS (2)
  - Lung squamous cell carcinoma stage III [Recovered/Resolved]
  - Metastases to lymph nodes [Recovered/Resolved]
